FAERS Safety Report 10096185 (Version 1)
Quarter: 2014Q2

REPORT INFORMATION
  Report Type: Spontaneous
  Country: SE (occurrence: SE)
  Receive Date: 20140422
  Receipt Date: 20140422
  Transmission Date: 20141212
  Serious: Yes (Life-Threatening)
  Sender: FDA-Public Use
  Company Number: SE-BAYER-2014-053731

PATIENT
  Age: 22 Year
  Sex: Female

DRUGS (1)
  1. ADALAT [Suspect]
     Indication: CEREBRAL VASOCONSTRICTION
     Dosage: UNK

REACTIONS (3)
  - Cerebral vasoconstriction [None]
  - Oedema peripheral [None]
  - Off label use [None]
